FAERS Safety Report 24954138 (Version 2)
Quarter: 2025Q1

REPORT INFORMATION
  Report Type: Spontaneous
  Country: US (occurrence: US)
  Receive Date: 20250211
  Receipt Date: 20250306
  Transmission Date: 20250408
  Serious: No
  Sender: ABBVIE
  Company Number: US-ABBVIE-6123920

PATIENT
  Age: 79 Year
  Sex: Female
  Weight: 92.986 kg

DRUGS (8)
  1. CREON [Suspect]
     Active Substance: PANCRELIPASE AMYLASE\PANCRELIPASE LIPASE\PANCRELIPASE PROTEASE
     Indication: Pancreatic failure
     Dosage: 3 CAPS WITH MEALS; 2 CAPS WITH SNACKS?DOSE INCREASED FROM TWO PILLS OF 36000 UNITS PER MEAL TO TH...
     Route: 048
     Dates: start: 20250201
  2. CREON [Suspect]
     Active Substance: PANCRELIPASE AMYLASE\PANCRELIPASE LIPASE\PANCRELIPASE PROTEASE
     Indication: Pancreatic failure
     Dosage: 2 CAPS WITH MEALS; 1 CAP WITH SNACKS?FORM STRENGTH: 36000 UNIT
     Route: 048
     Dates: start: 202311, end: 20250131
  3. PROLIA [Concomitant]
     Active Substance: DENOSUMAB
     Indication: Osteoporosis
  4. MELOXICAM [Concomitant]
     Active Substance: MELOXICAM
     Indication: Pain
  5. ATORVASTATIN [Concomitant]
     Active Substance: ATORVASTATIN
     Indication: Hyperlipidaemia
  6. DULOXETINE [Concomitant]
     Active Substance: DULOXETINE
     Indication: Neuralgia
  7. OXYBUTYNIN [Concomitant]
     Active Substance: OXYBUTYNIN
     Indication: Urinary incontinence
  8. PREGABALIN [Concomitant]
     Active Substance: PREGABALIN
     Indication: Neuralgia

REACTIONS (2)
  - Faecal elastase concentration decreased [Recovering/Resolving]
  - Diarrhoea [Recovering/Resolving]

NARRATIVE: CASE EVENT DATE: 20250131
